FAERS Safety Report 7352267-8 (Version None)
Quarter: 2011Q1

REPORT INFORMATION
  Report Type: 
  Country: None (occurrence: None)
  Receive Date: 20110315
  Receipt Date: 20110307
  Transmission Date: 20110831
  Serious: Yes (Hospitalization, Other)
  Sender: FDA-Public Use
  Company Number: JP-BRISTOL-MYERS SQUIBB COMPANY-15540735

PATIENT
  Age: 45 Year
  Sex: Male

DRUGS (6)
  1. LEVOTOMIN [Concomitant]
     Dosage: TAB
     Dates: start: 20101117, end: 20110104
  2. YODEL-S [Concomitant]
     Dosage: TAB
     Dates: end: 20110104
  3. PYRETHIA [Concomitant]
     Dosage: TAB
     Dates: end: 20110104
  4. ABILIFY [Suspect]
     Indication: SCHIZOPHRENIA
     Dosage: 12MG:23-24NOV10(2D) 15MG:25NOV-7DEC10(13D) 21MG:8-16DEC10(9D) 30MG:17DEC10-4JAN11(19D)
     Route: 048
     Dates: start: 20101123, end: 20110104
  5. ROHYPNOL [Concomitant]
     Dosage: TAB
     Dates: start: 20101117
  6. BENZALIN [Concomitant]
     Dosage: TAB
     Dates: start: 20101210, end: 20110104

REACTIONS (2)
  - DUODENAL ULCER HAEMORRHAGE [None]
  - SHOCK HAEMORRHAGIC [None]
